FAERS Safety Report 17331455 (Version 1)
Quarter: 2020Q1

REPORT INFORMATION
  Report Type: Spontaneous
  Country: US (occurrence: US)
  Receive Date: 20200127
  Receipt Date: 20200127
  Transmission Date: 20200409
  Serious: No
  Sender: FDA-Public Use
  Company Number: None

PATIENT
  Age: 70 Year
  Sex: Female
  Weight: 49.05 kg

DRUGS (10)
  1. CLARITIN [Concomitant]
     Active Substance: LORATADINE
  2. VITAMIN D [Concomitant]
     Active Substance: VITAMIN D NOS
  3. KISQALI FEMARA CO-PACK [Suspect]
     Active Substance: LETROZOLE\RIBOCICLIB
     Route: 048
  4. PSEUDOEPHEDRINE. [Concomitant]
     Active Substance: PSEUDOEPHEDRINE HYDROCHLORIDE
  5. OMEPRAZOLE. [Concomitant]
     Active Substance: OMEPRAZOLE
  6. ADVIL [Concomitant]
     Active Substance: IBUPROFEN
  7. RANITIDINE. [Concomitant]
     Active Substance: RANITIDINE
  8. NATURAL TEARS [Concomitant]
     Active Substance: POLYVINYL ALCOHOL\POVIDONE
  9. CALTRATE [Concomitant]
     Active Substance: CALCIUM CARBONATE
  10. TYLENOL [Concomitant]
     Active Substance: ACETAMINOPHEN

REACTIONS (1)
  - Diverticulitis [None]

NARRATIVE: CASE EVENT DATE: 20200123
